FAERS Safety Report 5236239-5 (Version None)
Quarter: 2007Q1

REPORT INFORMATION
  Report Type: 
  Country: None (occurrence: None)
  Receive Date: 20061208
  Receipt Date: 20050803
  Transmission Date: 20070707
  Serious: Yes (Other)
  Sender: FDA-Public Use
  Company Number: 2005UW08980

PATIENT
  Age: 70 Year
  Sex: Female
  Weight: 69.8539 kg

DRUGS (9)
  1. CRESTOR [Suspect]
     Indication: BLOOD CHOLESTEROL INCREASED
     Dosage: 10 MG DAILY PO
     Route: 048
     Dates: start: 20040520
  2. ATENOLOL [Concomitant]
  3. FOSAMAX [Concomitant]
  4. MOBIC [Concomitant]
  5. COZAAR [Concomitant]
  6. VITAMINS [Concomitant]
  7. ACIPHEX [Concomitant]
  8. ROBINUL [Concomitant]
  9. ASPIRIN [Concomitant]

REACTIONS (1)
  - HIGH DENSITY LIPOPROTEIN DECREASED [None]
